FAERS Safety Report 20247022 (Version 1)
Quarter: 2021Q4

REPORT INFORMATION
  Report Type: Spontaneous
  Country: US (occurrence: None)
  Receive Date: 20211228
  Receipt Date: 20211228
  Transmission Date: 20220304
  Serious: Yes (Hospitalization)
  Sender: FDA-Public Use
  Company Number: None

PATIENT
  Age: 84 Year
  Sex: Female

DRUGS (1)
  1. TOBRAMYCIN INHALATION SOLUTION [Suspect]
     Active Substance: TOBRAMYCIN
     Indication: Bronchiectasis
     Dosage: FREQUENCY : TWICE A DAY;?
     Route: 055
     Dates: start: 202102

REACTIONS (1)
  - Lung disorder [None]

NARRATIVE: CASE EVENT DATE: 20211201
